FAERS Safety Report 7069992-9 (Version None)
Quarter: 2010Q4

REPORT INFORMATION
  Report Type: 
  Country: None (occurrence: None)
  Receive Date: 20101028
  Receipt Date: 20101012
  Transmission Date: 20110411
  Serious: No
  Sender: FDA-Public Use
  Company Number: US-WYE-H16690310

PATIENT
  Sex: Female
  Weight: 67.19 kg

DRUGS (18)
  1. PROTONIX [Suspect]
     Dosage: UNKNOWN
     Dates: start: 20100506, end: 20100701
  2. AMLODIPINE [Concomitant]
  3. ACETYLSALICYLIC ACID [Concomitant]
  4. PLAVIX [Concomitant]
  5. LEXAPRO [Concomitant]
  6. HYDRALAZINE HYDROCHLORIDE [Concomitant]
  7. HYDROCORTISONE [Concomitant]
  8. ISOSORBIDE MONONITRATE [Concomitant]
  9. LORAZEPAM [Concomitant]
  10. MAGNESIUM [Concomitant]
  11. NADOLOL [Concomitant]
  12. NITROSTAT [Concomitant]
  13. OXYCONTIN [Concomitant]
  14. SINGULAIR [Concomitant]
  15. SOMA [Concomitant]
  16. PROGRAF [Concomitant]
  17. ERGOCALCIFEROL [Concomitant]
  18. ALLOPURINOL [Concomitant]

REACTIONS (3)
  - ACTIVITIES OF DAILY LIVING IMPAIRED [None]
  - HEADACHE [None]
  - NAUSEA [None]
